FAERS Safety Report 22021135 (Version 1)
Quarter: 2023Q1

REPORT INFORMATION
  Report Type: Spontaneous
  Country: US (occurrence: US)
  Receive Date: 20230222
  Receipt Date: 20230222
  Transmission Date: 20230418
  Serious: No
  Sender: FDA-Public Use
  Company Number: US-SA-SAC20230221000149

PATIENT
  Age: 57 Year
  Sex: Female
  Weight: 110.99 kg

DRUGS (1)
  1. DUPIXENT [Suspect]
     Active Substance: DUPILUMAB
     Indication: Dermatitis atopic
     Dosage: 600 MG, 1X
     Route: 058
     Dates: start: 20230209, end: 20230209

REACTIONS (3)
  - Skin irritation [Unknown]
  - Skin haemorrhage [Unknown]
  - Pruritus [Unknown]
